FAERS Safety Report 6317161-X (Version None)
Quarter: 2009Q3

REPORT INFORMATION
  Report Type: 
  Country: None (occurrence: None)
  Receive Date: 20090820
  Receipt Date: 20090810
  Transmission Date: 20100115
  Serious: Yes (Hospitalization, Other)
  Sender: FDA-Public Use
  Company Number: BR-ABBOTT-09P-020-0590568-00

PATIENT
  Sex: Male
  Weight: 91 kg

DRUGS (7)
  1. HUMIRA [Suspect]
     Indication: PSORIATIC ARTHROPATHY
     Dosage: INTERVAL OF 14 OR 15 DAYS
     Route: 058
     Dates: start: 20070101, end: 20090101
  2. HUMIRA [Suspect]
     Dosage: INTERVAL OF 14 OR 15 DAYS
     Route: 058
     Dates: start: 20090101
  3. ATENOLOL [Concomitant]
     Indication: HYPERTENSION
     Route: 048
  4. SIMVASTATIN [Concomitant]
     Indication: BLOOD CHOLESTEROL ABNORMAL
     Route: 048
  5. METFORMIN [Concomitant]
     Indication: DIABETES MELLITUS
     Route: 048
  6. HYDROCHLOROTHIAZIDE [Concomitant]
     Indication: HYPERTENSION
     Route: 048
  7. ENALAPRIL MALEATE [Concomitant]
     Indication: HYPERTENSION
     Route: 048

REACTIONS (2)
  - ABDOMINAL PAIN UPPER [None]
  - GALLBLADDER DISORDER [None]
